FAERS Safety Report 8023329-7 (Version None)
Quarter: 2012Q1

REPORT INFORMATION
  Report Type: 
  Country: None (occurrence: None)
  Receive Date: 20120104
  Receipt Date: 20120103
  Transmission Date: 20120608
  Serious: Yes (Hospitalization, Other)
  Sender: FDA-Public Use
  Company Number: US-ROCHE-751320

PATIENT
  Sex: Male
  Weight: 59 kg

DRUGS (12)
  1. ACCUTANE [Suspect]
     Route: 048
     Dates: start: 20020416, end: 20030714
  2. ACCUTANE [Suspect]
     Route: 048
     Dates: start: 20010216, end: 20010622
  3. AMNESTEEM [Suspect]
     Route: 048
     Dates: start: 20040527, end: 20051026
  4. ACCUTANE [Suspect]
     Indication: ACNE
     Route: 048
     Dates: start: 19990301, end: 19990701
  5. ACCUTANE [Suspect]
     Route: 048
     Dates: start: 20040227, end: 20040527
  6. ACCUTANE [Suspect]
     Route: 048
     Dates: start: 20020304, end: 20020416
  7. AMNESTEEM [Suspect]
     Route: 048
     Dates: start: 20060221, end: 20060803
  8. ACETAMINOPHEN [Concomitant]
     Indication: SINUSITIS
  9. ACCUTANE [Suspect]
     Route: 048
     Dates: start: 19990908, end: 20010216
  10. ACCUTANE [Suspect]
     Route: 048
     Dates: start: 20010622, end: 20020304
  11. AMNESTEEM [Suspect]
     Route: 048
     Dates: start: 20051026, end: 20060221
  12. AMNESTEEM [Suspect]
     Indication: ACNE
     Route: 048
     Dates: start: 20030715, end: 20040301

REACTIONS (7)
  - CLOSTRIDIUM DIFFICILE COLITIS [None]
  - ABDOMINAL ABSCESS [None]
  - HERPES ZOSTER [None]
  - COLITIS ULCERATIVE [None]
  - INFLAMMATORY BOWEL DISEASE [None]
  - CROHN'S DISEASE [None]
  - COLON INJURY [None]
